FAERS Safety Report 15066665 (Version 6)
Quarter: 2018Q3

REPORT INFORMATION
  Report Type: Spontaneous
  Country: DE (occurrence: DE)
  Receive Date: 20180626
  Receipt Date: 20180907
  Transmission Date: 20181010
  Serious: Yes (Hospitalization, Other)
  Sender: FDA-Public Use
  Company Number: DE-AUROBINDO-AUR-APL-2018-032615

PATIENT
  Age: 28 Year
  Sex: Male

DRUGS (44)
  1. ARIPIPRAZOLE. [Suspect]
     Active Substance: ARIPIPRAZOLE
     Indication: SCHIZOPHRENIA
  2. MIRTAZAPINE FILM?COATED TABLET [Suspect]
     Active Substance: MIRTAZAPINE
     Indication: PARANOIA
     Dosage: UNK
     Route: 065
  3. BIPERIDEN [Suspect]
     Active Substance: BIPERIDEN
     Indication: DYSKINESIA
  4. BUPROPION. [Suspect]
     Active Substance: BUPROPION
     Indication: ANTIDEPRESSANT THERAPY
  5. BRIVARACETAM [Concomitant]
     Active Substance: BRIVARACETAM
     Indication: MYOCLONUS
     Dosage: 200?250MG; RECEIVED OVER ONE YEAR ()
     Route: 065
  6. MIRTAZAPINE FILM?COATED TABLET [Suspect]
     Active Substance: MIRTAZAPINE
     Indication: ANTIDEPRESSANT THERAPY
  7. VENLAFAXINE PROLONGED?RELEASE CAPSULE, HARD [Suspect]
     Active Substance: VENLAFAXINE HYDROCHLORIDE
     Indication: ANTIDEPRESSANT THERAPY
  8. CLOZAPINE. [Suspect]
     Active Substance: CLOZAPINE
     Indication: PARANOIA
     Dosage: 75 MILLIGRAM
     Route: 065
  9. ARIPIPRAZOLE. [Suspect]
     Active Substance: ARIPIPRAZOLE
     Indication: PARANOIA
     Dosage: UNK
     Route: 065
  10. DULOXETINE. [Suspect]
     Active Substance: DULOXETINE
     Indication: ANTIDEPRESSANT THERAPY
  11. OLANZAPINE. [Suspect]
     Active Substance: OLANZAPINE
     Indication: SCHIZOPHRENIA
  12. ESCITALOPRAM 20 MG [Suspect]
     Active Substance: ESCITALOPRAM OXALATE
     Indication: PARANOIA
     Dosage: 20 MILLIGRAM
     Route: 065
  13. OXAZEPAM. [Suspect]
     Active Substance: OXAZEPAM
     Indication: MYOCLONUS
     Dosage: AT DIFFERENT DOSES
     Route: 065
  14. BIPERIDEN [Suspect]
     Active Substance: BIPERIDEN
     Indication: PARANOIA
     Dosage: UNK
     Route: 065
  15. ZONISAMIDE. [Concomitant]
     Active Substance: ZONISAMIDE
     Indication: MYOCLONUS
     Dosage: UP TO 100MG
     Route: 065
  16. QUETIAPINE FILM?COATED TABLET [Suspect]
     Active Substance: QUETIAPINE
     Indication: SCHIZOPHRENIA
  17. DULOXETINE. [Suspect]
     Active Substance: DULOXETINE
     Indication: PARANOIA
     Dosage: UNK
     Route: 065
  18. OLANZAPINE. [Suspect]
     Active Substance: OLANZAPINE
     Indication: PSYCHOTIC DISORDER
  19. ESCITALOPRAM 20 MG [Suspect]
     Active Substance: ESCITALOPRAM OXALATE
     Indication: ANTIDEPRESSANT THERAPY
  20. AMISULPRIDE [Suspect]
     Active Substance: AMISULPRIDE
     Indication: ANTIDEPRESSANT THERAPY
  21. AMISULPRIDE [Suspect]
     Active Substance: AMISULPRIDE
     Indication: SCHIZOPHRENIA
  22. AMISULPRIDE [Suspect]
     Active Substance: AMISULPRIDE
     Indication: PSYCHOTIC DISORDER
  23. BUPROPION. [Suspect]
     Active Substance: BUPROPION
     Indication: PARANOIA
     Dosage: UNK
     Route: 065
  24. PROMETHAZINE [Suspect]
     Active Substance: PROMETHAZINE\PROMETHAZINE HYDROCHLORIDE
     Indication: ANTIDEPRESSANT THERAPY
  25. PROMETHAZINE [Suspect]
     Active Substance: PROMETHAZINE\PROMETHAZINE HYDROCHLORIDE
     Indication: SCHIZOPHRENIA
  26. PROMETHAZINE [Suspect]
     Active Substance: PROMETHAZINE\PROMETHAZINE HYDROCHLORIDE
     Indication: PSYCHOTIC DISORDER
  27. CARBAMAZEPINE. [Concomitant]
     Active Substance: CARBAMAZEPINE
     Indication: MYOCLONUS
     Dosage: UP TO 900 MG
     Route: 065
  28. AMISULPRIDE [Suspect]
     Active Substance: AMISULPRIDE
     Indication: PARANOIA
     Dosage: UNK
     Route: 065
  29. ZOPICLONE [Suspect]
     Active Substance: ZOPICLONE
     Indication: PARANOIA
     Dosage: UNK
     Route: 065
  30. FLUOXETINE [Suspect]
     Active Substance: FLUOXETINE HYDROCHLORIDE
     Indication: PARANOIA
     Dosage: UNK
     Route: 065
  31. FLUOXETINE [Suspect]
     Active Substance: FLUOXETINE HYDROCHLORIDE
     Indication: ANTIDEPRESSANT THERAPY
  32. QUETIAPINE FILM?COATED TABLET [Suspect]
     Active Substance: QUETIAPINE
     Indication: PARANOIA
     Dosage: UNK
     Route: 048
  33. ARIPIPRAZOLE. [Suspect]
     Active Substance: ARIPIPRAZOLE
     Indication: PSYCHOTIC DISORDER
  34. OLANZAPINE. [Suspect]
     Active Substance: OLANZAPINE
     Indication: ANTIDEPRESSANT THERAPY
  35. RISPERIDONE. [Suspect]
     Active Substance: RISPERIDONE
     Indication: SCHIZOPHRENIA
  36. FLUOXETINE [Suspect]
     Active Substance: FLUOXETINE HYDROCHLORIDE
     Indication: MYOCLONUS
  37. PROMETHAZINE [Suspect]
     Active Substance: PROMETHAZINE\PROMETHAZINE HYDROCHLORIDE
     Indication: PARANOIA
     Dosage: UNK
     Route: 065
  38. OXCARBAZEPINE. [Concomitant]
     Active Substance: OXCARBAZEPINE
     Indication: MYOCLONUS
     Dosage: UP TO 2400MG; RECEIVED OVER ONE YEAR ()
     Route: 065
  39. OLANZAPINE. [Suspect]
     Active Substance: OLANZAPINE
     Indication: PARANOIA
     Dosage: UNK
     Route: 065
  40. VENLAFAXINE PROLONGED?RELEASE CAPSULE, HARD [Suspect]
     Active Substance: VENLAFAXINE HYDROCHLORIDE
     Indication: PARANOIA
     Dosage: UNK
     Route: 048
  41. RISPERIDONE. [Suspect]
     Active Substance: RISPERIDONE
     Indication: PSYCHOTIC DISORDER
     Dosage: UNK
     Route: 065
  42. ZOPICLONE [Suspect]
     Active Substance: ZOPICLONE
     Indication: MYOCLONUS
  43. FLUOXETINE [Suspect]
     Active Substance: FLUOXETINE HYDROCHLORIDE
     Indication: MYOCLONUS
  44. CLOBAZAM [Concomitant]
     Active Substance: CLOBAZAM
     Indication: MYOCLONUS
     Dosage: UP TO 20MG
     Route: 065

REACTIONS (7)
  - Drug ineffective [Unknown]
  - Condition aggravated [Recovering/Resolving]
  - Drug intolerance [Unknown]
  - Myoclonus [Recovered/Resolved]
  - Schizophreniform disorder [Unknown]
  - Dyskinesia [Unknown]
  - Juvenile myoclonic epilepsy [Unknown]
